FAERS Safety Report 17580247 (Version 1)
Quarter: 2020Q1

REPORT INFORMATION
  Report Type: Spontaneous
  Country: US (occurrence: US)
  Receive Date: 20200320
  Receipt Date: 20200320
  Transmission Date: 20200409
  Serious: No
  Sender: FDA-Public Use
  Company Number: None

PATIENT
  Age: 27 Year
  Sex: Female
  Weight: 95.71 kg

DRUGS (1)
  1. ARIPIPRAZOLE 5MG [Suspect]
     Active Substance: ARIPIPRAZOLE
     Route: 048
     Dates: start: 20200116, end: 20200320

REACTIONS (1)
  - Abdominal discomfort [None]

NARRATIVE: CASE EVENT DATE: 20200320
